FAERS Safety Report 13585896 (Version 1)
Quarter: 2017Q2

REPORT INFORMATION
  Report Type: Spontaneous
  Country: FR (occurrence: FR)
  Receive Date: 20170526
  Receipt Date: 20170526
  Transmission Date: 20170830
  Serious: Yes (Other)
  Sender: FDA-Public Use
  Company Number: FR-009507513-1705FRA009480

PATIENT
  Sex: Female

DRUGS (1)
  1. TEMODAL [Suspect]
     Active Substance: TEMOZOLOMIDE
     Indication: CEREBELLAR TUMOUR
     Dosage: UNK
     Route: 048
     Dates: end: 20170424

REACTIONS (2)
  - Cerebellar tumour [Unknown]
  - Drug ineffective [Unknown]
